FAERS Safety Report 6105729-5 (Version None)
Quarter: 2009Q1

REPORT INFORMATION
  Report Type: 
  Country: None (occurrence: None)
  Receive Date: 20090306
  Receipt Date: 20090303
  Transmission Date: 20090719
  Serious: Yes (Death)
  Sender: FDA-Public Use
  Company Number: US-ABBOTT-09P-163-0560153-00

PATIENT
  Sex: Female
  Weight: 58.566 kg

DRUGS (8)
  1. HUMIRA [Suspect]
     Indication: COLITIS ULCERATIVE
     Route: 058
     Dates: start: 20090130, end: 20090130
  2. HUMIRA [Suspect]
     Route: 058
     Dates: start: 20090214, end: 20090214
  3. PREDNISONE [Suspect]
     Indication: COLITIS ULCERATIVE
     Route: 048
     Dates: end: 20090227
  4. ASACOL [Concomitant]
     Indication: COLITIS ULCERATIVE
     Route: 048
     Dates: end: 20090227
  5. IRON SUPPLEMENT [Concomitant]
     Indication: ANAEMIA
     Route: 048
     Dates: end: 20090227
  6. CARAFATE [Concomitant]
     Indication: GASTROINTESTINAL ULCER
     Route: 048
     Dates: end: 20090227
  7. PANTOPRAZOLE [Concomitant]
     Indication: GASTROINTESTINAL ULCER
     Route: 048
     Dates: end: 20090227
  8. FLAGYL [Concomitant]
     Indication: DRUG USE FOR UNKNOWN INDICATION
     Route: 048
     Dates: end: 20090120

REACTIONS (1)
  - ABDOMINAL PAIN [None]
